FAERS Safety Report 11713838 (Version 1)
Quarter: 2015Q4

REPORT INFORMATION
  Report Type: Spontaneous
  Country: US (occurrence: None)
  Receive Date: 20151106
  Receipt Date: 20151106
  Transmission Date: 20160304
  Serious: Yes (Life-Threatening)
  Sender: FDA-Public Use
  Company Number: None

PATIENT
  Age: 56 Year
  Sex: Female
  Weight: 83.92 kg

DRUGS (4)
  1. ROCEPHIN [Suspect]
     Active Substance: CEFTRIAXONE SODIUM
     Indication: URINARY TRACT INFECTION
     Dosage: ONE DOSE IN IV
     Route: 042
     Dates: start: 20151018
  2. XARELTO [Concomitant]
     Active Substance: RIVAROXABAN
  3. ALBUTEROL. [Concomitant]
     Active Substance: ALBUTEROL
  4. DULERA [Concomitant]
     Active Substance: FORMOTEROL FUMARATE DIHYDRATE\MOMETASONE FUROATE

REACTIONS (2)
  - Drug interaction [None]
  - Drug hypersensitivity [None]

NARRATIVE: CASE EVENT DATE: 20151018
